FAERS Safety Report 6237154-0 (Version None)
Quarter: 2009Q2

REPORT INFORMATION
  Report Type: 
  Country: None (occurrence: None)
  Receive Date: 20090619
  Receipt Date: 20090504
  Transmission Date: 20091009
  Serious: No
  Sender: FDA-Public Use
  Company Number: US-ASTRAZENECA-2009UW11276

PATIENT
  Age: 28 Year
  Sex: Female

DRUGS (6)
  1. SYMBICORT [Suspect]
     Indication: ASTHMA
     Route: 055
     Dates: start: 20081001
  2. MULTI-VITAMIN [Concomitant]
  3. PROBIOTICS [Concomitant]
  4. MILK THISTLE [Concomitant]
  5. 5 HTP [Concomitant]
  6. SUPERENZYMES [Concomitant]

REACTIONS (2)
  - DRUG INEFFECTIVE [None]
  - STOMATITIS [None]
